FAERS Safety Report 4496314-X (Version None)
Quarter: 2004Q3

REPORT INFORMATION
  Report Type: 
  Country: None (occurrence: None)
  Receive Date: 20040921
  Receipt Date: 20040317
  Transmission Date: 20050211
  Serious: Yes (Hospitalization, Other)
  Sender: FDA-Public Use
  Company Number: 163-20785-04030484

PATIENT
  Age: 68 Year
  Sex: Male

DRUGS (16)
  1. THALOMID [Suspect]
     Indication: MULTIPLE MYELOMA
     Dosage: 200 MG, DAILY, ORAL
     Route: 048
     Dates: start: 20031023, end: 20040107
  2. MELPHALAN (MELPHALAN ) (INJECTION FOR INFUSION) [Suspect]
     Indication: MULTIPLE MYELOMA
     Dosage: 390 MG, DAILY, INTRAVENOUS
     Route: 042
     Dates: start: 20040126, end: 20040126
  3. CYCLOPHOSPHAMIDE [Suspect]
     Indication: MULTIPLE MYELOMA
     Dates: start: 20031218
  4. DEXAMETHASONE [Suspect]
     Indication: MULTIPLE MYELOMA
     Dates: start: 20031218
  5. ETOPOSIDE [Suspect]
     Indication: MULTIPLE MYELOMA
     Dates: start: 20031218
  6. CISPLATIN [Suspect]
     Indication: MULTIPLE MYELOMA
     Dates: start: 20031218
  7. SYNTHROID [Concomitant]
  8. PAXIL [Concomitant]
  9. CA CARBONATE (CALCIUM CARBONATE) [Concomitant]
  10. PROCRIT [Concomitant]
  11. TEQUIN [Concomitant]
  12. DIFLUCAN [Concomitant]
  13. FLAGYL [Concomitant]
  14. ACYCLOVIR [Concomitant]
  15. RANITIDINE [Concomitant]
  16. ZYRTEC [Concomitant]

REACTIONS (9)
  - C-REACTIVE PROTEIN INCREASED [None]
  - ESCHERICHIA BACTERAEMIA [None]
  - FEBRILE NEUTROPENIA [None]
  - MUCOSAL INFLAMMATION [None]
  - OESOPHAGITIS [None]
  - PERIRECTAL ABSCESS [None]
  - PULMONARY EMBOLISM [None]
  - THROMBOCYTOPENIA [None]
  - WHITE BLOOD CELL COUNT DECREASED [None]
